FAERS Safety Report 23382771 (Version 1)
Quarter: 2024Q1

REPORT INFORMATION
  Report Type: Spontaneous
  Country: US (occurrence: US)
  Receive Date: 20240109
  Receipt Date: 20240109
  Transmission Date: 20240410
  Serious: No
  Sender: FDA-Public Use
  Company Number: US-Covis Pharma GmbH-2024COV00014

PATIENT
  Age: 83 Year
  Sex: Male

DRUGS (2)
  1. LANOXIN [Suspect]
     Active Substance: DIGOXIN
     Route: 042
  2. SPIRONOLACTONE [Suspect]
     Active Substance: SPIRONOLACTONE

REACTIONS (1)
  - Breast tenderness [Recovered/Resolved]
